FAERS Safety Report 14163751 (Version 1)
Quarter: 2017Q4

REPORT INFORMATION
  Report Type: Spontaneous
  Country: FR (occurrence: FR)
  Receive Date: 20171107
  Receipt Date: 20171107
  Transmission Date: 20180321
  Serious: Yes (Hospitalization, Disabling)
  Sender: FDA-Public Use
  Company Number: FR-MERCK KGAA-2033373

PATIENT
  Age: 70 Year
  Sex: Female

DRUGS (7)
  1. ATORVASTATIN [Concomitant]
     Active Substance: ATORVASTATIN
  2. TERBINAFINE. [Concomitant]
     Active Substance: TERBINAFINE
  3. THERALENE [Concomitant]
     Active Substance: TRIMEPRAZINE
  4. ELIQUIS [Concomitant]
     Active Substance: APIXABAN
  5. AERIUS [Concomitant]
     Active Substance: DESLORATADINE
  6. NOVOTHYROX [Suspect]
     Active Substance: LEVOTHYROXINE SODIUM
     Indication: THYROID MASS
     Route: 048
  7. TRILEPTAL [Concomitant]
     Active Substance: OXCARBAZEPINE

REACTIONS (5)
  - Palpitations [Not Recovered/Not Resolved]
  - Blood thyroid stimulating hormone normal [Not Recovered/Not Resolved]
  - Fatigue [Not Recovered/Not Resolved]
  - Heart rate irregular [Not Recovered/Not Resolved]
  - Labile blood pressure [Not Recovered/Not Resolved]

NARRATIVE: CASE EVENT DATE: 20170402
